FAERS Safety Report 26162998 (Version 1)
Quarter: 2025Q4

REPORT INFORMATION
  Report Type: Spontaneous
  Country: US (occurrence: None)
  Receive Date: 20251215
  Receipt Date: 20251215
  Transmission Date: 20260117
  Serious: Yes (Other)
  Sender: FDA-CTU
  Company Number: None

PATIENT
  Age: 35 Year
  Sex: Male

DRUGS (10)
  1. TACROLIMUS [Suspect]
     Active Substance: TACROLIMUS
     Indication: Renal transplant
     Dosage: 3 CAPSULES BID ORAL
     Route: 048
     Dates: start: 20251119
  2. DOXYCYCLINE [Concomitant]
     Active Substance: DOXYCYCLINE
  3. LORAZEPAM [Concomitant]
     Active Substance: LORAZEPAM
  4. CLINDAMYCIN [Concomitant]
     Active Substance: CLINDAMYCIN
  5. PREDNISONE [Concomitant]
     Active Substance: PREDNISONE
  6. HYOSCYAMINE [Concomitant]
     Active Substance: HYOSCYAMINE
  7. AMLODIPINE BESYLATE [Concomitant]
     Active Substance: AMLODIPINE BESYLATE
  8. METOPROLOL TARTRATE [Concomitant]
     Active Substance: METOPROLOL TARTRATE
  9. ACITRETIN [Concomitant]
     Active Substance: ACITRETIN
  10. FERROUS SULFATE [Concomitant]
     Active Substance: FERROUS SULFATE

REACTIONS (2)
  - Squamous cell carcinoma [None]
  - Malignant neoplasm progression [None]
